FAERS Safety Report 15821073 (Version 1)
Quarter: 2019Q1

REPORT INFORMATION
  Report Type: Spontaneous
  Country: US (occurrence: US)
  Receive Date: 20190112
  Receipt Date: 20190112
  Transmission Date: 20190417
  Serious: Yes (Disabling)
  Sender: FDA-Public Use
  Company Number: None

PATIENT
  Age: 37 Year
  Sex: Female
  Weight: 63 kg

DRUGS (12)
  1. LEVAQUIN [Suspect]
     Active Substance: LEVOFLOXACIN
     Indication: VIRAL PHARYNGITIS
     Dosage: ?          QUANTITY:7 TABLET(S);?
     Route: 048
     Dates: start: 20181114, end: 20181118
  2. REGLAN [Concomitant]
     Active Substance: METOCLOPRAMIDE HYDROCHLORIDE
  3. PREDINONE [Concomitant]
  4. HYDROXYCHLOROQUINE [Concomitant]
     Active Substance: HYDROXYCHLOROQUINE
  5. FOLIC ACID. [Concomitant]
     Active Substance: FOLIC ACID
  6. TOPAMAX [Concomitant]
     Active Substance: TOPIRAMATE
  7. KLONOPIN [Concomitant]
     Active Substance: CLONAZEPAM
  8. IMITREX [Concomitant]
     Active Substance: SUMATRIPTAN SUCCINATE
  9. IBUPROFEN. [Concomitant]
     Active Substance: IBUPROFEN
  10. TRAMADOL. [Concomitant]
     Active Substance: TRAMADOL
  11. ZOFRAN [Concomitant]
     Active Substance: ONDANSETRON HYDROCHLORIDE
  12. METHOTREXATE. [Concomitant]
     Active Substance: METHOTREXATE

REACTIONS (9)
  - Gastrointestinal disorder [None]
  - Disability [None]
  - Nervous system disorder [None]
  - Movement disorder [None]
  - Rheumatoid arthritis [None]
  - Migraine [None]
  - Loss of personal independence in daily activities [None]
  - Carpal tunnel syndrome [None]
  - Paraesthesia [None]

NARRATIVE: CASE EVENT DATE: 20181121
